FAERS Safety Report 7089956-9 (Version None)
Quarter: 2010Q4

REPORT INFORMATION
  Report Type: 
  Country: None (occurrence: None)
  Receive Date: 20101108
  Receipt Date: 20101026
  Transmission Date: 20110411
  Serious: Yes (Hospitalization)
  Sender: FDA-Public Use
  Company Number: DE-AMGEN-DEUCT2010001676

PATIENT

DRUGS (4)
  1. ENBREL [Suspect]
     Indication: RHEUMATOID ARTHRITIS
     Route: 058
     Dates: start: 20081001, end: 20100101
  2. ACETYLSALICYLIC ACID [Concomitant]
     Dosage: UNKNOWN
  3. IBUPROFEN [Concomitant]
  4. GLUCOCORTICOIDS [Concomitant]
     Dosage: 5 MG, UNK

REACTIONS (3)
  - ERYTHEMA [None]
  - OEDEMA PERIPHERAL [None]
  - VASOCONSTRICTION [None]
